FAERS Safety Report 7639711-3 (Version None)
Quarter: 2011Q3

REPORT INFORMATION
  Report Type: 
  Country: None (occurrence: None)
  Receive Date: 20110727
  Receipt Date: 20110720
  Transmission Date: 20111222
  Serious: Yes (Other)
  Sender: FDA-Public Use
  Company Number: US-PFIZER INC-2011081213

PATIENT
  Sex: Female

DRUGS (22)
  1. CEPHALEXIN [Concomitant]
     Indication: INFECTION
     Dosage: UNK
     Dates: start: 20040101
  2. ACYCLOVIR [Concomitant]
     Indication: HERPES ZOSTER
     Dosage: UNK
     Dates: start: 20070101
  3. CHANTIX [Suspect]
     Indication: SMOKING CESSATION THERAPY
     Dosage: MONTH PACK
     Dates: start: 20071219, end: 20080119
  4. ALBUTEROL SULFATE AUTOHALER [Concomitant]
     Indication: CHRONIC OBSTRUCTIVE PULMONARY DISEASE
  5. METRONIDAZOLE [Concomitant]
     Indication: INFECTION
     Dosage: UNK
     Dates: start: 20050101, end: 20090101
  6. DOXYCYCLINE [Concomitant]
     Indication: INFECTION
     Dosage: UNK
     Dates: start: 20050101
  7. FLUCONAZOLE [Concomitant]
     Indication: INFECTION
     Dosage: UNK
     Dates: start: 20050101
  8. TRAMADOL [Concomitant]
     Indication: PAIN
     Dosage: UNK
     Dates: start: 20050101
  9. PREDNISONE [Concomitant]
     Indication: BLOOD CHOLESTEROL
     Dosage: UNK
     Dates: start: 20070101
  10. AZITHROMYCIN [Concomitant]
     Indication: INFECTION
     Dosage: UNK
     Dates: start: 20050101
  11. CYCLOBENZAPRINE [Concomitant]
     Indication: PAIN
     Dosage: UNK
     Dates: start: 20050101
  12. IMITREX [Concomitant]
     Indication: MIGRAINE
     Dosage: UNK
     Dates: start: 20040101
  13. PROAIR HFA [Concomitant]
     Indication: ASTHMA
     Dosage: UNK
     Dates: start: 20070101
  14. ALBUTEROL SULFATE AUTOHALER [Concomitant]
     Indication: ASTHMA
     Dosage: UNK
     Dates: start: 20050101
  15. NASONEX [Concomitant]
     Indication: HYPERSENSITIVITY
     Dosage: UNK
     Dates: start: 20030101
  16. CHANTIX [Suspect]
     Dosage: STARTING PACK AND CONTINUNIG PACK
     Dates: start: 20080729, end: 20080929
  17. TYLENOL-500 [Concomitant]
     Indication: PAIN
     Dosage: UNK
     Dates: start: 20030101, end: 20090101
  18. AMOXICILLIN [Concomitant]
     Indication: INFECTION
     Dosage: UNK
     Dates: start: 20050101
  19. CLEMASTINE FUMARATE [Concomitant]
     Indication: HYPERSENSITIVITY
     Dosage: UNK
     Dates: start: 20030101
  20. GABAPENTIN [Concomitant]
     Indication: PAIN
     Dosage: UNK
     Dates: start: 20050101
  21. IBUPROFEN [Concomitant]
     Indication: PAIN
     Dosage: UNK
     Dates: start: 20040101, end: 20090101
  22. PROPOXYPHENE HYDROCHLORIDE [Concomitant]
     Indication: PAIN
     Dosage: UNK
     Dates: start: 20070101

REACTIONS (8)
  - SUICIDAL IDEATION [None]
  - SCHIZOPHRENIA [None]
  - DEPRESSION [None]
  - AGGRESSION [None]
  - SUICIDE ATTEMPT [None]
  - ANXIETY [None]
  - PSYCHOTIC DISORDER [None]
  - INSOMNIA [None]
